FAERS Safety Report 17084465 (Version 1)
Quarter: 2019Q4

REPORT INFORMATION
  Report Type: Report from Study
  Country: US (occurrence: US)
  Receive Date: 20191127
  Receipt Date: 20191127
  Transmission Date: 20200122
  Serious: Yes (Death, Other)
  Sender: FDA-Public Use
  Company Number: US-GLAXOSMITHKLINE-2019-TSO01086-US

PATIENT
  Age: 61 Year
  Sex: Female

DRUGS (1)
  1. NIRAPARIB [Suspect]
     Active Substance: NIRAPARIB
     Indication: OVARIAN CANCER
     Dosage: 300 MG, QPM WITHOUT FOOD
     Route: 048
     Dates: start: 20190221, end: 20190227

REACTIONS (7)
  - Nausea [Unknown]
  - Vomiting [Unknown]
  - Blood urea increased [Unknown]
  - Insomnia [Unknown]
  - Death [Fatal]
  - Decreased appetite [Unknown]
  - Blood creatinine increased [Unknown]

NARRATIVE: CASE EVENT DATE: 201902
